FAERS Safety Report 5857420-8 (Version None)
Quarter: 2008Q3

REPORT INFORMATION
  Report Type: 
  Country: None (occurrence: None)
  Receive Date: 20080825
  Receipt Date: 20080825
  Transmission Date: 20090109
  Serious: Yes (Death, Hospitalization)
  Sender: FDA-Public Use
  Company Number: None

PATIENT
  Sex: Male
  Weight: 69.1 kg

DRUGS (15)
  1. SORAFENIB [Suspect]
     Indication: PROSTATE CANCER
     Dosage: 400MG BID PO
     Route: 048
     Dates: start: 20080428, end: 20080727
  2. TAXOTERE [Suspect]
     Indication: PROSTATE CANCER
     Dosage: 55 MG/M2 X1 Q 3 WEEKS IV
     Route: 042
     Dates: start: 20080428, end: 20080707
  3. DEXAMETHASONE TAB [Concomitant]
  4. FLUOXETINE [Concomitant]
  5. OMEPRAZOLE [Concomitant]
  6. MIRALAX [Concomitant]
  7. SENNA [Concomitant]
  8. INSULIN [Concomitant]
  9. IBUPROFEN [Concomitant]
  10. FLUMAZENIL [Concomitant]
  11. LORAZEPAM [Concomitant]
  12. COMPAZINE [Concomitant]
  13. SINGULAIR [Concomitant]
  14. NORCO [Concomitant]
  15. MORPHINE [Concomitant]

REACTIONS (8)
  - FALL [None]
  - GENERAL PHYSICAL HEALTH DETERIORATION [None]
  - MALIGNANT NEOPLASM PROGRESSION [None]
  - METASTASIS [None]
  - MUSCULAR WEAKNESS [None]
  - NO THERAPEUTIC RESPONSE [None]
  - PARAESTHESIA [None]
  - PROSTATE CANCER [None]
